FAERS Safety Report 19808337 (Version 3)
Quarter: 2022Q1

REPORT INFORMATION
  Report Type: Spontaneous
  Country: JP (occurrence: JP)
  Receive Date: 20210908
  Receipt Date: 20220130
  Transmission Date: 20220424
  Serious: Yes (Death, Other)
  Sender: FDA-Public Use
  Company Number: JP-JAZZ-2021-JP-016404

PATIENT
  Age: 49 Year
  Sex: Male
  Weight: 66.9 kg

DRUGS (7)
  1. DEFITELIO [Suspect]
     Active Substance: DEFIBROTIDE SODIUM
     Indication: Venoocclusive liver disease
     Dosage: 25 MG/KG DAILY
     Route: 042
     Dates: start: 20210306, end: 20210401
  2. TACROLIMUS [Concomitant]
     Active Substance: TACROLIMUS
     Dosage: UNK
     Dates: end: 202103
  3. TACROLIMUS [Concomitant]
     Active Substance: TACROLIMUS
     Dosage: UNK
     Dates: start: 2021, end: 202104
  4. PREDNISOLONE [Concomitant]
     Active Substance: PREDNISOLONE
     Dosage: UNK
     Dates: start: 202103
  5. FUROSEMIDE [Concomitant]
     Active Substance: FUROSEMIDE
     Dosage: UNK
     Dates: start: 202103
  6. SPIRONOLACTONE [Concomitant]
     Active Substance: SPIRONOLACTONE
     Dosage: UNK
     Dates: start: 202103
  7. TOLVAPTAN [Concomitant]
     Active Substance: TOLVAPTAN
     Dosage: UNK
     Dates: start: 202103

REACTIONS (18)
  - Venoocclusive liver disease [Fatal]
  - Disease progression [Unknown]
  - Ascites [Recovering/Resolving]
  - Depressed level of consciousness [Unknown]
  - Hepatic atrophy [Unknown]
  - Hepatic vein occlusion [Unknown]
  - Aspartate aminotransferase increased [Unknown]
  - Alanine aminotransferase increased [Unknown]
  - Blood creatinine increased [Unknown]
  - Weight increased [Unknown]
  - Oedema peripheral [Recovering/Resolving]
  - Blood bilirubin increased [Unknown]
  - Abdominal discomfort [Unknown]
  - Malaise [Unknown]
  - Spleen atrophy [Unknown]
  - Dyspnoea [Unknown]
  - Drug ineffective [Unknown]
  - Off label use [Unknown]

NARRATIVE: CASE EVENT DATE: 20210101
